FAERS Safety Report 18963958 (Version 1)
Quarter: 2021Q1

REPORT INFORMATION
  Report Type: Spontaneous
  Country: US (occurrence: US)
  Receive Date: 20210303
  Receipt Date: 20210303
  Transmission Date: 20210420
  Serious: No
  Sender: FDA-Public Use
  Company Number: US-AMNEAL PHARMACEUTICALS-2020-AMRX-00357

PATIENT
  Age: 76 Year
  Sex: Male
  Weight: 92.97 kg

DRUGS (3)
  1. RYTARY [Suspect]
     Active Substance: CARBIDOPA\LEVODOPA
     Indication: PARKINSON^S DISEASE
     Dosage: 4 CAPSULES, 3 /DAY
     Route: 048
     Dates: start: 201904, end: 20191230
  2. RYTARY [Suspect]
     Active Substance: CARBIDOPA\LEVODOPA
     Dosage: 4 CAPSULES, TID
     Route: 048
     Dates: start: 20200203
  3. RYTARY [Suspect]
     Active Substance: CARBIDOPA\LEVODOPA
     Dosage: 4 CAPSULES, 3 /DAY
     Route: 048
     Dates: end: 20200105

REACTIONS (5)
  - Weight decreased [Unknown]
  - Insomnia [Recovered/Resolved]
  - Therapy cessation [Unknown]
  - Tremor [Recovering/Resolving]
  - Rash pruritic [Recovering/Resolving]

NARRATIVE: CASE EVENT DATE: 20191230
